FAERS Safety Report 7462720-4 (Version None)
Quarter: 2011Q2

REPORT INFORMATION
  Report Type: 
  Country: None (occurrence: None)
  Receive Date: 20110506
  Receipt Date: 20110325
  Transmission Date: 20111010
  Serious: Yes (Other)
  Sender: FDA-Public Use
  Company Number: US-BAYER-201029566NA

PATIENT
  Age: 26 Year
  Sex: Female

DRUGS (6)
  1. YAZ [Suspect]
     Indication: PRODUCT USED FOR UNKNOWN INDICATION
     Route: 048
  2. NORFLEX [Concomitant]
     Dosage: UNK
     Dates: end: 20080626
  3. YASMIN [Suspect]
     Indication: PRODUCT USED FOR UNKNOWN INDICATION
     Dosage: UNK UNK, QD
     Route: 048
  4. PRILOSEC [Concomitant]
     Dosage: UNK
     Dates: start: 20080626
  5. PANTOPRAZOLE [Concomitant]
     Dosage: 40 MG, BID
     Dates: start: 20080621
  6. NEXIUM [Concomitant]
     Dosage: 40 MG, UNK
     Dates: start: 20080626

REACTIONS (6)
  - PANCREATITIS ACUTE [None]
  - CHOLECYSTITIS [None]
  - GALLBLADDER NON-FUNCTIONING [None]
  - GALLBLADDER DISORDER [None]
  - BILIARY DYSKINESIA [None]
  - CHOLELITHIASIS [None]
